FAERS Safety Report 13026266 (Version 1)
Quarter: 2016Q4

REPORT INFORMATION
  Report Type: Spontaneous
  Country: US (occurrence: US)
  Receive Date: 20161214
  Receipt Date: 20161214
  Transmission Date: 20170207
  Serious: No
  Sender: FDA-Public Use
  Company Number: US-ASTRAZENECA-2016SF24526

PATIENT
  Age: 57 Year
  Sex: Male
  Weight: 79.4 kg

DRUGS (2)
  1. TRIPLEX [Concomitant]
     Active Substance: ACETAMINOPHEN\ASPIRIN\CODEINE PHOSPHATE
     Indication: BLOOD TRIGLYCERIDES INCREASED
     Dosage: DAILY
     Route: 048
  2. XIGDUO XR [Suspect]
     Active Substance: DAPAGLIFLOZIN PROPANEDIOL\METFORMIN HYDROCHLORIDE
     Indication: TYPE 2 DIABETES MELLITUS
     Dosage: TWO TIMES A DAY
     Route: 048

REACTIONS (6)
  - Neuralgia [Not Recovered/Not Resolved]
  - Off label use [Recovered/Resolved]
  - Drug dose omission [Not Recovered/Not Resolved]
  - Somnolence [Not Recovered/Not Resolved]
  - Peripheral swelling [Not Recovered/Not Resolved]
  - Fatigue [Not Recovered/Not Resolved]

NARRATIVE: CASE EVENT DATE: 2016
